FAERS Safety Report 6527314-3 (Version None)
Quarter: 2010Q1

REPORT INFORMATION
  Report Type: 
  Country: None (occurrence: None)
  Receive Date: 20100105
  Receipt Date: 20091229
  Transmission Date: 20100710
  Serious: Yes (Hospitalization)
  Sender: FDA-Public Use
  Company Number: GXKR2009TR13906

PATIENT
  Age: 23 Year
  Sex: Male

DRUGS (3)
  1. VALPROIC ACID (NGX) [Suspect]
     Indication: CONVULSION
     Route: 065
  2. VALPROIC ACID (NGX) [Suspect]
     Indication: GRAND MAL CONVULSION
  3. ACYCLOVIR [Concomitant]
     Route: 065

REACTIONS (5)
  - EXTENSOR PLANTAR RESPONSE [None]
  - GRAND MAL CONVULSION [None]
  - HEMIPARESIS [None]
  - ISCHAEMIC STROKE [None]
  - LOSS OF CONSCIOUSNESS [None]
